FAERS Safety Report 5246499-2 (Version None)
Quarter: 2007Q1

REPORT INFORMATION
  Report Type: 
  Country: None (occurrence: None)
  Receive Date: 20070226
  Receipt Date: 20070214
  Transmission Date: 20070707
  Serious: Yes (Hospitalization)
  Sender: FDA-Public Use
  Company Number: DK-BAYER-200710784GDS

PATIENT
  Age: 76 Year
  Sex: Female
  Weight: 70 kg

DRUGS (20)
  1. SORAFENIB [Suspect]
     Indication: RENAL CELL CARCINOMA STAGE UNSPECIFIED
     Route: 048
     Dates: start: 20060419, end: 20070201
  2. ELTROXIN [Concomitant]
     Indication: GOITRE
     Route: 065
     Dates: start: 19600101
  3. MONOTRIM [Concomitant]
     Indication: KIDNEY INFECTION
     Route: 065
     Dates: start: 19850101
  4. ESTROFEM [Concomitant]
     Indication: HORMONE REPLACEMENT THERAPY
     Route: 065
     Dates: start: 20020101
  5. NATRILIX SR [Concomitant]
     Indication: HYPERTENSION
     Route: 065
     Dates: start: 20050101
  6. AMLODIPINE [Concomitant]
     Indication: HYPERTENSION
     Route: 065
     Dates: start: 20060425
  7. PAMOL [Concomitant]
     Indication: ABDOMINAL PAIN
     Route: 065
     Dates: start: 20060502
  8. ISOCOR [Concomitant]
     Indication: HYPERTENSION
     Route: 065
     Dates: start: 20060425
  9. ISOCOR [Concomitant]
     Route: 065
     Dates: start: 20070202, end: 20070203
  10. ISOCOR [Concomitant]
     Route: 065
     Dates: start: 20070203, end: 20070205
  11. ISOCOR [Concomitant]
     Route: 065
     Dates: start: 20070205
  12. TRADOLAN [Concomitant]
     Indication: ABDOMINAL PAIN
     Route: 065
     Dates: start: 20050501, end: 20060509
  13. IMODIUM [Concomitant]
     Indication: DIARRHOEA
     Route: 065
     Dates: start: 20060801
  14. PREDNISOLONE [Concomitant]
     Indication: FATIGUE
     Route: 065
     Dates: start: 20061115, end: 20061118
  15. PREDNISOLONE [Concomitant]
     Route: 065
     Dates: start: 20061118
  16. VILAN [Concomitant]
     Indication: ABDOMINAL PAIN
     Route: 065
     Dates: start: 20070101
  17. TERTENSIF [Concomitant]
     Indication: HYPERTENSION
     Route: 065
     Dates: start: 20060101
  18. CIPROFLOXACIN HYDROCHLORIDE [Concomitant]
     Indication: INFECTION
     Route: 065
     Dates: start: 20070202, end: 20070201
  19. RENTREXYL [Concomitant]
     Indication: INFECTION
     Route: 065
     Dates: start: 20070202, end: 20070201
  20. DIFLUCAN [Concomitant]
     Indication: STOMATITIS
     Route: 065
     Dates: start: 20070207

REACTIONS (5)
  - ABDOMINAL PAIN [None]
  - ATRIAL FIBRILLATION [None]
  - BLOOD CREATININE INCREASED [None]
  - HEPATIC ENZYME INCREASED [None]
  - HEPATOBILIARY DISEASE [None]
